FAERS Safety Report 7133098-0 (Version None)
Quarter: 2010Q4

REPORT INFORMATION
  Report Type: 
  Country: None (occurrence: None)
  Receive Date: 20101202
  Receipt Date: 20101126
  Transmission Date: 20110411
  Serious: Yes (Hospitalization)
  Sender: FDA-Public Use
  Company Number: B0687098A

PATIENT
  Sex: Female

DRUGS (1)
  1. AUGMENTIN [Suspect]
     Indication: SINUSITIS
     Dosage: 875MG TWICE PER DAY
     Route: 065

REACTIONS (4)
  - HEPATIC ENZYME INCREASED [None]
  - HEPATITIS TOXIC [None]
  - NAUSEA [None]
  - VOMITING [None]
